FAERS Safety Report 14307869 (Version 2)
Quarter: 2018Q1

REPORT INFORMATION
  Report Type: Spontaneous
  Country: RU (occurrence: RU)
  Receive Date: 20171220
  Receipt Date: 20180103
  Transmission Date: 20180509
  Serious: Yes (Hospitalization, Other)
  Sender: FDA-Public Use
  Company Number: RU-ASTRAZENECA-2017SF28481

PATIENT
  Age: 65 Year
  Sex: Female
  Weight: 71 kg

DRUGS (7)
  1. FLUCONAZOLE. [Concomitant]
     Active Substance: FLUCONAZOLE
  2. PERINDOPRIL ERBUMINE. [Concomitant]
     Active Substance: PERINDOPRIL ERBUMINE
     Dates: start: 201606
  3. PERINEVA [Concomitant]
     Active Substance: PERINDOPRIL ERBUMINE
  4. ACETYLSALICYLIC ACID [Concomitant]
     Active Substance: ASPIRIN
  5. CONCOR [Concomitant]
     Active Substance: BISOPROLOL FUMARATE
  6. BRILINTA [Suspect]
     Active Substance: TICAGRELOR
     Indication: ANGINA UNSTABLE
     Route: 048
     Dates: start: 201701, end: 201708
  7. TRIMETAZIDINE [Concomitant]
     Active Substance: TRIMETAZIDINE

REACTIONS (2)
  - Mitral valve incompetence [Unknown]
  - Myocardial infarction [Recovered/Resolved]

NARRATIVE: CASE EVENT DATE: 20170607
